FAERS Safety Report 24146985 (Version 1)
Quarter: 2024Q3

REPORT INFORMATION
  Report Type: Spontaneous
  Country: CN (occurrence: CN)
  Receive Date: 20240729
  Receipt Date: 20240729
  Transmission Date: 20241017
  Serious: Yes (Hospitalization)
  Sender: GE HEALTHCARE
  Company Number: CN-GE HEALTHCARE-2024CSU008476

PATIENT
  Age: 60 Year
  Sex: Female

DRUGS (1)
  1. VISIPAQUE [Suspect]
     Active Substance: IODIXANOL
     Indication: Computerised tomogram
     Dosage: 100 ML, TOTAL
     Route: 042
     Dates: start: 20240629, end: 20240629

REACTIONS (4)
  - Nerve compression [Recovered/Resolved]
  - Hypoaesthesia [Recovered/Resolved]
  - Localised oedema [Recovered/Resolved]
  - Infusion site extravasation [Recovered/Resolved]

NARRATIVE: CASE EVENT DATE: 20240629
